FAERS Safety Report 10488765 (Version 2)
Quarter: 2014Q4

REPORT INFORMATION
  Report Type: Spontaneous
  Country: US (occurrence: US)
  Receive Date: 20141002
  Receipt Date: 20141119
  Transmission Date: 20150528
  Serious: Yes (Hospitalization, Other)
  Sender: FDA-Public Use
  Company Number: US-TEVA-511974USA

PATIENT
  Sex: Female
  Weight: 77.18 kg

DRUGS (2)
  1. WARFARIN [Suspect]
     Active Substance: WARFARIN
     Route: 065
  2. LYRICA [Suspect]
     Active Substance: PREGABALIN
     Indication: NEUROPATHY PERIPHERAL
     Dosage: 150 MILLIGRAM DAILY;
     Route: 065

REACTIONS (3)
  - Influenza [Unknown]
  - Pneumonia [Unknown]
  - Pulmonary haemorrhage [Unknown]
